FAERS Safety Report 24558219 (Version 2)
Quarter: 2024Q4

REPORT INFORMATION
  Report Type: Spontaneous
  Country: KR (occurrence: KR)
  Receive Date: 20241028
  Receipt Date: 20241107
  Transmission Date: 20250114
  Serious: Yes (Other)
  Sender: AMGEN
  Company Number: KR-PFIZER INC-202400280293

PATIENT
  Sex: Female
  Weight: 49 kg

DRUGS (2)
  1. ENBREL [Suspect]
     Active Substance: ETANERCEPT
     Indication: Product used for unknown indication
     Dosage: 50 MG (2 OF 25 MG), WEEKLY
     Route: 065
  2. ENBREL [Suspect]
     Active Substance: ETANERCEPT
     Dosage: 40 MG, WEEKLY
     Route: 065

REACTIONS (4)
  - Rheumatoid arthritis [Unknown]
  - Pneumonia [Unknown]
  - Infection [Unknown]
  - Off label use [Unknown]
